FAERS Safety Report 10220490 (Version 9)
Quarter: 2017Q3

REPORT INFORMATION
  Report Type: Report from Study
  Country: CA (occurrence: CA)
  Receive Date: 20140606
  Receipt Date: 20170703
  Transmission Date: 20171127
  Serious: Yes (Other)
  Sender: FDA-Public Use
  Company Number: CA-ROCHE-1140745

PATIENT
  Age: 35 Year
  Sex: Female
  Weight: 70 kg

DRUGS (10)
  1. ACTEMRA [Suspect]
     Active Substance: TOCILIZUMAB
     Indication: RHEUMATOID ARTHRITIS
     Route: 042
     Dates: start: 20120927, end: 20141121
  2. CELEXA [Concomitant]
     Active Substance: CITALOPRAM HYDROBROMIDE
  3. BETAHISTINE [Concomitant]
     Active Substance: BETAHISTINE
     Route: 065
     Dates: start: 20140513
  4. ACTEMRA [Suspect]
     Active Substance: TOCILIZUMAB
     Route: 042
     Dates: start: 20140708
  5. CELEBREX [Concomitant]
     Active Substance: CELECOXIB
  6. ZOPICLONE [Concomitant]
     Active Substance: ZOPICLONE
  7. ACTEMRA [Suspect]
     Active Substance: TOCILIZUMAB
     Route: 042
     Dates: start: 20140506
  8. PREDNISONE. [Concomitant]
     Active Substance: PREDNISONE
  9. ACTEMRA [Suspect]
     Active Substance: TOCILIZUMAB
     Route: 042
     Dates: start: 20140604
  10. METHOTREXATE. [Concomitant]
     Active Substance: METHOTREXATE

REACTIONS (21)
  - Vertigo [Unknown]
  - Stomatitis [Not Recovered/Not Resolved]
  - Increased tendency to bruise [Not Recovered/Not Resolved]
  - Lymphadenopathy [Not Recovered/Not Resolved]
  - Oral herpes [Unknown]
  - Bronchitis [Not Recovered/Not Resolved]
  - Urinary tract infection [Recovering/Resolving]
  - Lower respiratory tract infection [Not Recovered/Not Resolved]
  - Cough [Recovering/Resolving]
  - Respiratory tract infection [Unknown]
  - Arthritis [Unknown]
  - Energy increased [Not Recovered/Not Resolved]
  - Fatigue [Unknown]
  - Headache [Unknown]
  - Pyrexia [Not Recovered/Not Resolved]
  - Palpitations [Not Recovered/Not Resolved]
  - Nasopharyngitis [Recovering/Resolving]
  - Stomatitis [Unknown]
  - Fatigue [Not Recovered/Not Resolved]
  - Weight decreased [Not Recovered/Not Resolved]
  - Nasal congestion [Recovering/Resolving]

NARRATIVE: CASE EVENT DATE: 20120928
